FAERS Safety Report 24732143 (Version 1)
Quarter: 2024Q4

REPORT INFORMATION
  Report Type: Report from Study
  Country: US (occurrence: US)
  Receive Date: 20241213
  Receipt Date: 20241213
  Transmission Date: 20250115
  Serious: Yes (Hospitalization)
  Sender: RECORDATI
  Company Number: US-ORPHANEU-2024001737

PATIENT

DRUGS (4)
  1. CARBAGLU [Suspect]
     Active Substance: CARGLUMIC ACID
     Indication: Propionic acidaemia
     Dosage: 250 MG, BID
     Route: 048
     Dates: start: 20231023, end: 202403
  2. CARBAGLU [Suspect]
     Active Substance: CARGLUMIC ACID
     Dosage: 300 MG, QID
     Route: 048
     Dates: start: 20240303
  3. LEVOCARNITINE [Concomitant]
     Active Substance: LEVOCARNITINE
     Indication: Propionic acidaemia
     Dosage: 300 MG, QID
     Route: 048
     Dates: start: 20240214
  4. NYSTATIN [Concomitant]
     Active Substance: NYSTATIN
     Indication: Prophylaxis
     Dosage: 250,000 U, BID
     Route: 048
     Dates: start: 20240326, end: 20240507

REACTIONS (8)
  - Urinary tract infection [Recovering/Resolving]
  - Ammonia increased [Recovered/Resolved]
  - Liver transplant rejection [Recovered/Resolved]
  - Ascites [Recovered/Resolved]
  - Hypophagia [Recovering/Resolving]
  - Vomiting [Recovered/Resolved]
  - Vomiting [Recovered/Resolved]
  - Infection [Recovered/Resolved]

NARRATIVE: CASE EVENT DATE: 20240101
